FAERS Safety Report 9565216 (Version 1)
Quarter: 2013Q3

REPORT INFORMATION
  Report Type: Spontaneous
  Country: US (occurrence: US)
  Receive Date: 20130930
  Receipt Date: 20130930
  Transmission Date: 20140515
  Serious: No
  Sender: FDA-Public Use
  Company Number: US-VIIV HEALTHCARE LIMITED-A1012851A

PATIENT
  Age: 48 Year
  Sex: Male

DRUGS (2)
  1. EPZICOM [Suspect]
     Indication: HIV INFECTION
     Route: 048
     Dates: start: 20121101
  2. MULTIPLE MEDICATIONS [Concomitant]

REACTIONS (2)
  - Overdose [Unknown]
  - Nausea [Unknown]
